FAERS Safety Report 24271333 (Version 2)
Quarter: 2024Q3

REPORT INFORMATION
  Report Type: Report from Study
  Country: US (occurrence: US)
  Receive Date: 20240901
  Receipt Date: 20240926
  Transmission Date: 20241017
  Serious: Yes (Hospitalization)
  Sender: DECIPHERA PHARMACEUTICALS
  Company Number: US-DECIPHERA PHARMACEUTICALS LLC-2024US000752

PATIENT
  Age: 70 Year
  Sex: Male

DRUGS (3)
  1. QINLOCK [Suspect]
     Active Substance: RIPRETINIB
     Indication: Gastrointestinal stromal tumour
     Dosage: 150 MILLIGRAM, QD
     Route: 048
     Dates: start: 20240601, end: 20240821
  2. QINLOCK [Suspect]
     Active Substance: RIPRETINIB
     Dosage: 150 MILLIGRAM, QD
     Route: 048
     Dates: start: 20240823, end: 202409
  3. QINLOCK [Suspect]
     Active Substance: RIPRETINIB
     Dosage: 150 MILLIGRAM, QD
     Route: 048
     Dates: start: 202409

REACTIONS (13)
  - Oesophageal rupture [Unknown]
  - Gastrointestinal haemorrhage [Unknown]
  - Dysuria [Unknown]
  - Oedema [Unknown]
  - Deep vein thrombosis [Unknown]
  - Vascular compression [Unknown]
  - Pulmonary embolism [Unknown]
  - Neoplasm progression [Unknown]
  - Asthenia [Unknown]
  - Weight increased [Unknown]
  - Haemorrhoids [Unknown]
  - Prostatomegaly [Unknown]
  - Fatigue [Unknown]

NARRATIVE: CASE EVENT DATE: 20240101
